FAERS Safety Report 4311197-6 (Version None)
Quarter: 2004Q1

REPORT INFORMATION
  Report Type: 
  Country: None (occurrence: None)
  Receive Date: 20040302
  Receipt Date: 20040223
  Transmission Date: 20041129
  Serious: Yes (Hospitalization)
  Sender: FDA-Public Use
  Company Number: US-JNJFOC-20040205024

PATIENT
  Age: 70 Year
  Sex: Female

DRUGS (9)
  1. INFLIXIMAB (INFLIXIMAB, RECOMBINANT) LYOPHILIZED POWDER [Suspect]
     Indication: RHEUMATOID ARTHRITIS
     Dosage: INTRAVENOUS
     Route: 042
     Dates: start: 20010215, end: 20010215
  2. METHOTREXATE [Concomitant]
  3. SALSALATE (SALSALATE) [Concomitant]
  4. PREDNISONE [Concomitant]
  5. DARVOCET [Concomitant]
  6. LASIX [Concomitant]
  7. POTASSIUM (POTASSIUM) [Concomitant]
  8. VITAMIN C (ASCORBIC ACID) [Concomitant]
  9. VITAMIN E [Concomitant]

REACTIONS (1)
  - PALPITATIONS [None]
